FAERS Safety Report 7779732-3 (Version None)
Quarter: 2011Q3

REPORT INFORMATION
  Report Type: 
  Country: None (occurrence: None)
  Receive Date: 20110927
  Receipt Date: 20100824
  Transmission Date: 20111222
  Serious: No
  Sender: FDA-Public Use
  Company Number: US-ASTRAZENECA-2009UW19101

PATIENT
  Sex: Female
  Weight: 88.5 kg

DRUGS (12)
  1. CYMBALTA [Concomitant]
     Dosage: 30-60 MG
     Dates: start: 20050502
  2. NEXIUM [Concomitant]
     Dates: start: 20050401
  3. CRESTOR [Concomitant]
     Dates: start: 20050401
  4. CLONAZEPAM [Concomitant]
     Dates: start: 20050502
  5. SEROQUEL [Suspect]
     Indication: ANXIETY
     Route: 048
     Dates: start: 20050602
  6. WELLBUTRIN XL [Concomitant]
     Dates: start: 20050419
  7. PLAVIX [Concomitant]
     Dates: start: 20050512
  8. RISPERDAL [Concomitant]
     Dates: start: 20050426
  9. SEROQUEL [Suspect]
     Route: 048
  10. ALPRAZOLAM [Concomitant]
     Dates: start: 20050401
  11. LUNESTA [Concomitant]
     Dates: start: 20050502
  12. METHENAMINE MAN [Concomitant]
     Dates: start: 20050523

REACTIONS (2)
  - PANIC ATTACK [None]
  - TYPE 2 DIABETES MELLITUS [None]
